FAERS Safety Report 18167950 (Version 1)
Quarter: 2020Q3

REPORT INFORMATION
  Report Type: Spontaneous
  Country: US (occurrence: US)
  Receive Date: 20200818
  Receipt Date: 20200818
  Transmission Date: 20201103
  Serious: No
  Sender: FDA-Public Use
  Company Number: None

PATIENT
  Age: 71 Year
  Sex: Male

DRUGS (1)
  1. SAMSCA [Suspect]
     Active Substance: TOLVAPTAN
     Dosage: ?          OTHER DOSE:15;?
     Route: 048
     Dates: start: 202007

REACTIONS (1)
  - Off label use [None]

NARRATIVE: CASE EVENT DATE: 20200818
